FAERS Safety Report 13336800 (Version 2)
Quarter: 2017Q1

REPORT INFORMATION
  Report Type: Spontaneous
  Country: US (occurrence: US)
  Receive Date: 20170314
  Receipt Date: 20170329
  Transmission Date: 20170428
  Serious: No
  Sender: FDA-Public Use
  Company Number: US-JAZZ-2017-US-002674

PATIENT
  Sex: Female

DRUGS (32)
  1. DALMANE [Concomitant]
     Active Substance: FLURAZEPAM HYDROCHLORIDE
  2. DOXEPIN                            /00138002/ [Concomitant]
     Active Substance: DOXEPIN
  3. LAMICTAL [Concomitant]
     Active Substance: LAMOTRIGINE
  4. MOBIC [Concomitant]
     Active Substance: MELOXICAM
  5. RITALIN [Concomitant]
     Active Substance: METHYLPHENIDATE HYDROCHLORIDE
  6. VITAMIN B12 [Concomitant]
     Active Substance: CYANOCOBALAMIN
  7. XANAX [Concomitant]
     Active Substance: ALPRAZOLAM
  8. STRATTERA [Concomitant]
     Active Substance: ATOMOXETINE HYDROCHLORIDE
  9. ASPIRIN 81 [Concomitant]
     Active Substance: ASPIRIN
  10. SYNTHROID [Concomitant]
     Active Substance: LEVOTHYROXINE SODIUM
  11. ESTRONE [Concomitant]
     Active Substance: ESTRONE
  12. XYREM [Suspect]
     Active Substance: SODIUM OXYBATE
     Indication: NARCOLEPSY
     Dosage: 3 G, BID
     Route: 048
     Dates: start: 201407, end: 2014
  13. TRICOR                             /00090101/ [Concomitant]
     Active Substance: ADENOSINE
  14. LOSARTAN POTASSIUM. [Concomitant]
     Active Substance: LOSARTAN POTASSIUM
  15. CALCIUM CARBONATE. [Concomitant]
     Active Substance: CALCIUM CARBONATE
  16. XYREM [Suspect]
     Active Substance: SODIUM OXYBATE
     Dosage: 4.5 G, BID
     Route: 048
     Dates: start: 201702
  17. LACTULOSE. [Concomitant]
     Active Substance: LACTULOSE
  18. MSM [Concomitant]
     Active Substance: DIMETHYL SULFONE
  19. SAVELLA [Concomitant]
     Active Substance: MILNACIPRAN HYDROCHLORIDE
  20. XYREM [Suspect]
     Active Substance: SODIUM OXYBATE
     Indication: CATAPLEXY
     Dosage: DOSE ADJUSTMENT
     Route: 048
     Dates: start: 201408, end: 2017
  21. HORIZANT [Concomitant]
     Active Substance: GABAPENTIN ENACARBIL
  22. ACEBUTOLOL [Concomitant]
     Active Substance: ACEBUTOLOL
  23. NATURE-THROID [Concomitant]
     Active Substance: THYROID, PORCINE
  24. VOLTAREN [Concomitant]
     Active Substance: DICLOFENAC SODIUM
  25. VITAMIN D                          /00107901/ [Concomitant]
     Active Substance: ERGOCALCIFEROL
  26. FAMOTIDINE. [Concomitant]
     Active Substance: FAMOTIDINE
  27. NALTREXONE [Concomitant]
     Active Substance: NALTREXONE
  28. PROGESTERONE. [Concomitant]
     Active Substance: PROGESTERONE
  29. TESTOSTERONE. [Concomitant]
     Active Substance: TESTOSTERONE
  30. ADDERALL [Concomitant]
     Active Substance: AMPHETAMINE ASPARTATE\AMPHETAMINE SULFATE\DEXTROAMPHETAMINE SACCHARATE\DEXTROAMPHETAMINE SULFATE
  31. IBUPROFEN. [Concomitant]
     Active Substance: IBUPROFEN
  32. VYVANSE [Concomitant]
     Active Substance: LISDEXAMFETAMINE DIMESYLATE

REACTIONS (1)
  - Drug ineffective [Unknown]
